FAERS Safety Report 6930198-2 (Version None)
Quarter: 2010Q3

REPORT INFORMATION
  Report Type: 
  Country: None (occurrence: None)
  Receive Date: 20100813
  Receipt Date: 20100728
  Transmission Date: 20110219
  Serious: Yes (Hospitalization)
  Sender: FDA-Public Use
  Company Number: 7012713

PATIENT
  Age: 25 Year
  Sex: Female

DRUGS (7)
  1. REBIF [Suspect]
     Indication: MULTIPLE SCLEROSIS
     Dosage: 44 MCG, 3 IN 1 WK, SUBCUTANEOUS
     Route: 058
     Dates: start: 20091225
  2. CARDIZEN (DILTIAZEM) [Concomitant]
  3. ANSITEC (BUSPIRONE) [Concomitant]
  4. MANNIPULATED FORMULATION WITH PHORPHORUS (ALL OTHER THERAPEUTIC PRODUC [Concomitant]
  5. DYPIRONE (METAMIZOLE) [Concomitant]
  6. SERTRALINE HYDROCHLORIDE [Concomitant]
  7. IBUPROFEN [Concomitant]

REACTIONS (6)
  - ARTERIAL SPASM [None]
  - BLOOD CREATINE PHOSPHOKINASE ABNORMAL [None]
  - BLOOD CREATINE PHOSPHOKINASE MB ABNORMAL [None]
  - CARDIAC ENZYMES INCREASED [None]
  - CHEST PAIN [None]
  - MYOCARDIAL ISCHAEMIA [None]
